FAERS Safety Report 4274099-X (Version None)
Quarter: 2004Q1

REPORT INFORMATION
  Report Type: 
  Country: None (occurrence: None)
  Receive Date: 20040120
  Receipt Date: 20031210
  Transmission Date: 20041129
  Serious: Yes (Disabling)
  Sender: FDA-Public Use
  Company Number: FR-GLAXOSMITHKLINE-B0317708A

PATIENT
  Age: 49 Year
  Sex: Female
  Weight: 58 kg

DRUGS (2)
  1. SERETIDE [Suspect]
     Indication: ASTHMA
     Route: 055
     Dates: start: 20011101, end: 20031101
  2. ENDOTELON [Concomitant]
     Dosage: 1TAB TWICE PER DAY
     Route: 048

REACTIONS (6)
  - DYSPNOEA [None]
  - FATIGUE [None]
  - LARYNGOSPASM [None]
  - MALAISE [None]
  - TACHYCARDIA [None]
  - TACHYPNOEA [None]
